FAERS Safety Report 8186631-4 (Version None)
Quarter: 2012Q1

REPORT INFORMATION
  Report Type: 
  Country: None (occurrence: None)
  Receive Date: 20120306
  Receipt Date: 20120229
  Transmission Date: 20120608
  Serious: No
  Sender: FDA-Public Use
  Company Number: US-PFIZER INC-2012054311

PATIENT
  Sex: Female
  Weight: 65.76 kg

DRUGS (7)
  1. SIMVASTATIN [Suspect]
     Dosage: 40 MG, 1X/DAY DAILY
     Dates: start: 20110801, end: 20120101
  2. LIPITOR [Suspect]
     Dosage: 40 MG, 1X/DAY DAILY
     Route: 048
     Dates: start: 20120101
  3. LORAZEPAM [Suspect]
     Indication: ANXIETY
     Dosage: 3XDAY
     Dates: end: 20120226
  4. PAROXETINE [Suspect]
     Dosage: 40 MG, 1X/DAY DAILY
     Dates: start: 20120131, end: 20120101
  5. ACETYLSALICYLIC ACID [Concomitant]
     Dosage: 81 MG, 1X/DAY DAILY
  6. LIPITOR [Suspect]
     Dosage: UNK
  7. PAROXETINE [Suspect]
     Dosage: 20 MG, 1X/DAY DAILY
     Dates: start: 20120101

REACTIONS (5)
  - PAIN IN EXTREMITY [None]
  - DRUG INEFFECTIVE [None]
  - BACK INJURY [None]
  - WEIGHT INCREASED [None]
  - FALL [None]
